FAERS Safety Report 20037233 (Version 1)
Quarter: 2021Q4

REPORT INFORMATION
  Report Type: Spontaneous
  Country: US (occurrence: None)
  Receive Date: 20211105
  Receipt Date: 20211105
  Transmission Date: 20220303
  Serious: Yes (Hospitalization)
  Sender: FDA-Public Use
  Company Number: US-ROCHE-2856631

PATIENT
  Sex: Female

DRUGS (4)
  1. CAPECITABINE [Suspect]
     Active Substance: CAPECITABINE
     Indication: Product used for unknown indication
     Route: 048
  2. HERCEPTIN [Suspect]
     Active Substance: TRASTUZUMAB
     Indication: Product used for unknown indication
     Route: 065
  3. TUKYSA [Suspect]
     Active Substance: TUCATINIB
     Indication: Breast cancer female
     Dosage: PATIENT TAKES, 2 150MG TABLETS EVERY 12 HOURS. DISCONTINUED 50 MG DOSE.
     Route: 048
  4. LETROZOLE [Concomitant]
     Active Substance: LETROZOLE

REACTIONS (5)
  - Dehydration [Unknown]
  - Gastric disorder [Unknown]
  - Nausea [Unknown]
  - Fatigue [Unknown]
  - Alpha 1 foetoprotein increased [Unknown]
